FAERS Safety Report 15317959 (Version 1)
Quarter: 2018Q3

REPORT INFORMATION
  Report Type: Spontaneous
  Country: FR (occurrence: FR)
  Receive Date: 20180824
  Receipt Date: 20180824
  Transmission Date: 20181010
  Serious: Yes (Hospitalization)
  Sender: FDA-Public Use
  Company Number: PHHY2018FR078589

PATIENT
  Age: 89 Year
  Sex: Male
  Weight: 83 kg

DRUGS (3)
  1. FLAGYL [Suspect]
     Active Substance: METRONIDAZOLE\METRONIDAZOLE HYDROCHLORIDE
     Indication: CHOLECYSTITIS
     Dosage: 1500 MG, QD
     Route: 042
     Dates: start: 20160115, end: 20160122
  2. CEFTRIAXONE. [Suspect]
     Active Substance: CEFTRIAXONE
     Indication: CHOLECYSTITIS
     Dosage: 1 G, QD
     Route: 042
     Dates: start: 20160115, end: 20160122
  3. NEO?MERCAZOLE [Suspect]
     Active Substance: CARBIMAZOLE
     Indication: PRODUCT USED FOR UNKNOWN INDICATION
     Dosage: 5 MG, UNK
     Route: 048

REACTIONS (3)
  - Cell death [Recovered/Resolved]
  - Jaundice [Recovered/Resolved]
  - Hepatitis [Recovered/Resolved]

NARRATIVE: CASE EVENT DATE: 20160117
